FAERS Safety Report 8423079-9 (Version None)
Quarter: 2012Q2

REPORT INFORMATION
  Report Type: 
  Country: None (occurrence: None)
  Receive Date: 20120608
  Receipt Date: 20120530
  Transmission Date: 20120825
  Serious: Yes (Other)
  Sender: FDA-Public Use
  Company Number: US-ASTRAZENECA-2009SE20366

PATIENT
  Age: 69 Year
  Sex: Female
  Weight: 87.5 kg

DRUGS (17)
  1. NASACORT [Concomitant]
  2. JANUVIA [Concomitant]
     Indication: DIABETES MELLITUS
  3. SINGULAIR [Concomitant]
  4. NEXIUM [Suspect]
     Route: 048
     Dates: start: 20090801
  5. LIPITOR [Concomitant]
  6. NEXIUM [Suspect]
     Route: 048
     Dates: start: 20120101
  7. PRILOSEC [Suspect]
     Indication: OESOPHAGEAL STENOSIS
     Route: 048
  8. NEXIUM [Suspect]
     Indication: GASTROOESOPHAGEAL REFLUX DISEASE
     Route: 048
  9. NEXIUM [Suspect]
     Route: 048
     Dates: start: 20120101
  10. NEXIUM [Suspect]
     Indication: OESOPHAGEAL STENOSIS
     Route: 048
  11. NEXIUM [Suspect]
     Route: 048
     Dates: start: 20090801
  12. PRILOSEC OTC [Suspect]
     Indication: OESOPHAGEAL STENOSIS
     Route: 048
  13. METOPROLOL SUCCINATE [Concomitant]
  14. TRAZODONE HCL [Concomitant]
     Indication: FIBROMYALGIA
  15. PRILOSEC OTC [Suspect]
     Indication: GASTROOESOPHAGEAL REFLUX DISEASE
     Route: 048
  16. CLONAZEPAM [Concomitant]
     Indication: FIBROMYALGIA
  17. PRILOSEC [Suspect]
     Indication: GASTROOESOPHAGEAL REFLUX DISEASE
     Route: 048

REACTIONS (7)
  - INTERVERTEBRAL DISC PROTRUSION [None]
  - FLATULENCE [None]
  - GASTRIC NEOPLASM [None]
  - OFF LABEL USE [None]
  - ABDOMINAL DISTENSION [None]
  - OESOPHAGEAL OBSTRUCTION [None]
  - DRUG INEFFECTIVE [None]
